FAERS Safety Report 5688849-9 (Version None)
Quarter: 2008Q1

REPORT INFORMATION
  Report Type: 
  Country: None (occurrence: None)
  Receive Date: 20080331
  Receipt Date: 20040716
  Transmission Date: 20080703
  Serious: Yes (Death)
  Sender: FDA-Public Use
  Company Number: JP-ROCHE-374999

PATIENT

DRUGS (4)
  1. FLUMAZENIL [Suspect]
     Indication: ANAESTHESIA REVERSAL
     Route: 065
  2. MIDAZOLAM HCL [Suspect]
     Indication: ANALGESIA
     Route: 065
  3. PENTAZOCINE LACTATE [Suspect]
     Indication: ANALGESIA
     Route: 065
  4. SUCCINYLCHOLINE CHLORIDE [Suspect]
     Route: 065

REACTIONS (1)
  - DEATH [None]
